FAERS Safety Report 8143279-5 (Version None)
Quarter: 2012Q1

REPORT INFORMATION
  Report Type: 
  Country: None (occurrence: None)
  Receive Date: 20120217
  Receipt Date: 20120214
  Transmission Date: 20120608
  Serious: Yes (Other)
  Sender: FDA-Public Use
  Company Number: JP-PFIZER INC-2012039900

PATIENT
  Sex: Female

DRUGS (1)
  1. NASANYL [Suspect]
     Indication: ENDOMETRIOSIS
     Dosage: UNK
     Route: 045
     Dates: start: 20110827

REACTIONS (1)
  - ANAPHYLACTOID REACTION [None]
